FAERS Safety Report 8981487 (Version 1)
Quarter: 2012Q4

REPORT INFORMATION
  Report Type: 
  Country: AR (occurrence: AR)
  Receive Date: 20121221
  Receipt Date: 20121221
  Transmission Date: 20130627
  Serious: Yes (Other)
  Sender: FDA-Public Use
  Company Number: AR-AMGEN-ARGSP2012081674

PATIENT
  Age: 52 Year
  Sex: Male

DRUGS (1)
  1. ENBREL [Suspect]
     Indication: RHEUMATOID ARTHRITIS
     Dosage: 50 mg, weekly
     Dates: start: 20051219

REACTIONS (9)
  - Heat stroke [Unknown]
  - Musculoskeletal discomfort [Unknown]
  - Pyrexia [Recovered/Resolved]
  - Sight disability [Unknown]
  - Insomnia [Recovered/Resolved]
  - Joint swelling [Recovered/Resolved]
  - Swelling [Recovered/Resolved]
  - Muscle strain [Unknown]
  - Gait disturbance [Unknown]
